FAERS Safety Report 9775261 (Version 3)
Quarter: 2015Q4

REPORT INFORMATION
  Report Type: Report from Study
  Country: US (occurrence: US)
  Receive Date: 20131220
  Receipt Date: 20151008
  Transmission Date: 20160305
  Serious: Yes (Hospitalization, Other)
  Sender: FDA-Public Use
  Company Number: US-ROCHE-1317937

PATIENT
  Age: 23 Year
  Sex: Female

DRUGS (42)
  1. QVAR [Concomitant]
     Active Substance: BECLOMETHASONE DIPROPIONATE
     Dosage: 2 PUFFS DAILY, AEROSOL INHALER
     Route: 045
  2. BACTRIM [Concomitant]
     Active Substance: SULFAMETHOXAZOLE\TRIMETHOPRIM
     Route: 048
  3. ALBUTEROL SULFATE. [Concomitant]
     Active Substance: ALBUTEROL SULFATE
     Dosage: 2 PUFFS Q4HOURS
     Route: 045
  4. DUONEB [Concomitant]
     Active Substance: ALBUTEROL SULFATE\IPRATROPIUM BROMIDE
     Dosage: 1 VIAL NEBULIZED Q4HOURS OR PRN, NEBULATISION SOLUTION
     Route: 045
  5. PREDNISONE. [Concomitant]
     Active Substance: PREDNISONE
     Dosage: AS DIRECTED
     Route: 048
  6. SOLU-MEDROL [Concomitant]
     Active Substance: METHYLPREDNISOLONE SODIUM SUCCINATE
     Route: 065
  7. OMEPRAZOLE. [Concomitant]
     Active Substance: OMEPRAZOLE
     Route: 048
  8. PREDNISONE. [Concomitant]
     Active Substance: PREDNISONE
     Route: 048
  9. PREDNISONE. [Concomitant]
     Active Substance: PREDNISONE
     Route: 048
  10. IMITREX [Concomitant]
     Active Substance: SUMATRIPTAN\SUMATRIPTAN SUCCINATE
     Route: 048
  11. FLEXERIL [Concomitant]
     Active Substance: CYCLOBENZAPRINE HYDROCHLORIDE
     Route: 048
  12. PAXIL (UNITED STATES) [Concomitant]
     Route: 048
  13. QVAR [Concomitant]
     Active Substance: BECLOMETHASONE DIPROPIONATE
     Route: 045
  14. BACTRIM [Concomitant]
     Active Substance: SULFAMETHOXAZOLE\TRIMETHOPRIM
     Dosage: 1 TABLET EVERY OTHER DAY, MONDAY, WEDNESDAY, FRIDAY/ EVERY OTHERDAY
     Route: 048
  15. THEOPHYLLINE [Concomitant]
     Active Substance: THEOPHYLLINE ANHYDROUS
     Route: 048
  16. CELEXA (UNITED STATES) [Concomitant]
     Route: 048
  17. EPIPEN [Concomitant]
     Active Substance: EPINEPHRINE
     Dosage: 0.3MG/0.3ML USE AS DIRECTED
     Route: 065
  18. TRAMADOL. [Concomitant]
     Active Substance: TRAMADOL
     Dosage: ER TABLET
     Route: 048
  19. XOLAIR [Suspect]
     Active Substance: OMALIZUMAB
     Route: 058
  20. ALBUTEROL SULFATE. [Concomitant]
     Active Substance: ALBUTEROL SULFATE
     Dosage: 90MCG/ACT 2 PUFFS Q4HOURS, AS NEEDED
     Route: 045
  21. DUONEB [Concomitant]
     Active Substance: ALBUTEROL SULFATE\IPRATROPIUM BROMIDE
     Dosage: 0.5MG-3MG(2.5MG BASE)/3ML
     Route: 045
  22. SINGULAIR [Concomitant]
     Active Substance: MONTELUKAST SODIUM
     Route: 048
  23. MIDRIN [Concomitant]
     Active Substance: ACETAMINOPHEN\DICHLORALPHENAZONE\ISOMETHEPTENE
     Dosage: 325-65-100MG, 1CAP/HR, NOT EXCEED 5CAP WITHIN12HR
     Route: 048
  24. MAGNESIUM SULPHATE [Concomitant]
     Active Substance: MAGNESIUM SULFATE
     Route: 065
  25. THEOPHYLLINE [Concomitant]
     Active Substance: THEOPHYLLINE ANHYDROUS
     Dosage: EXTENDED RELEASE TABLET
     Route: 048
  26. FLONASE (UNITED STATES) [Concomitant]
     Dosage: 2 SPRAYS IN EACH NOSTRIL BID
     Route: 045
  27. OMEPRAZOLE. [Concomitant]
     Active Substance: OMEPRAZOLE
     Route: 048
  28. PREDNISONE. [Concomitant]
     Active Substance: PREDNISONE
     Route: 048
  29. SEPTRA DS [Concomitant]
     Active Substance: SULFAMETHOXAZOLE\TRIMETHOPRIM
     Dosage: 800MG-160MG
     Route: 048
  30. ATIVAN [Concomitant]
     Active Substance: LORAZEPAM
     Dosage: AS NEEDED
     Route: 048
  31. FLUTICASONE [Concomitant]
     Active Substance: FLUTICASONE\FLUTICASONE PROPIONATE
     Dosage: 50MCG/ACT, 2 TIMES IN EACH NOSTRIL
     Route: 045
  32. ADDERALL XR [Concomitant]
     Active Substance: AMPHETAMINE ASPARTATE\AMPHETAMINE SULFATE\DEXTROAMPHETAMINE SACCHARATE\DEXTROAMPHETAMINE SULFATE
     Dosage: AS NEEDED
     Route: 048
  33. PREDNISONE. [Concomitant]
     Active Substance: PREDNISONE
     Route: 048
  34. XOLAIR [Suspect]
     Active Substance: OMALIZUMAB
     Indication: ASTHMA
     Route: 058
     Dates: start: 20120202
  35. XOLAIR [Suspect]
     Active Substance: OMALIZUMAB
     Dosage: EVERY TWO WEEKS 300 MG
     Route: 058
  36. ULTRAM [Concomitant]
     Active Substance: TRAMADOL HYDROCHLORIDE
     Route: 048
  37. PAXIL (UNITED STATES) [Concomitant]
     Route: 048
  38. THEOPHYLLINE [Concomitant]
     Active Substance: THEOPHYLLINE ANHYDROUS
     Dosage: 800MG DAILY
     Route: 048
  39. XANAX [Concomitant]
     Active Substance: ALPRAZOLAM
     Dosage: AS NEEDED
     Route: 048
  40. ADVAIR DISKUS [Concomitant]
     Active Substance: FLUTICASONE PROPIONATE\SALMETEROL XINAFOATE
     Dosage: 1 PUFF BID, BLISTER INHALATION POWDER, 230-21/ACT 2 PUFFS BID WITH SPACER
     Route: 065
  41. FLONASE (UNITED STATES) [Concomitant]
     Dosage: 0.5MG-3MG(2.5MG BASE)/3ML
     Route: 045
  42. XOPENEX [Concomitant]
     Active Substance: LEVALBUTEROL HYDROCHLORIDE
     Dosage: AERO SOL, PRN,  AS REQUIRED
     Route: 045

REACTIONS (61)
  - Dyspnoea paroxysmal nocturnal [Unknown]
  - Weight decreased [Unknown]
  - Abdominal pain [Unknown]
  - Gait disturbance [Unknown]
  - Panic attack [Unknown]
  - Breath sounds abnormal [Unknown]
  - Dysphonia [Unknown]
  - Hot flush [Unknown]
  - Anxiety [Unknown]
  - Ear pain [Unknown]
  - Sneezing [Unknown]
  - Sinus headache [Unknown]
  - Toothache [Unknown]
  - Productive cough [Unknown]
  - Balance disorder [Unknown]
  - Gallbladder disorder [Unknown]
  - Wheezing [Unknown]
  - Asthma [Recovered/Resolved]
  - Choking [Unknown]
  - Chills [Unknown]
  - Fatigue [Unknown]
  - Tachycardia [Unknown]
  - Pleuritic pain [Unknown]
  - Headache [Unknown]
  - Diplopia [Unknown]
  - Epistaxis [Unknown]
  - Upper-airway cough syndrome [Unknown]
  - Orthopnoea [Unknown]
  - Jaundice [Unknown]
  - Pyrexia [Unknown]
  - Cough [Unknown]
  - Dizziness [Unknown]
  - Candida infection [Unknown]
  - Haemoptysis [Unknown]
  - Chest pain [Unknown]
  - Decreased appetite [Unknown]
  - Back pain [Unknown]
  - Dyspepsia [Unknown]
  - Hepatobiliary scan abnormal [Unknown]
  - Tinnitus [Unknown]
  - Intermittent claudication [Unknown]
  - Abdominal distension [Unknown]
  - Vomiting [Unknown]
  - Myalgia [Unknown]
  - Rhinorrhoea [Unknown]
  - Paranasal sinus discomfort [Unknown]
  - Neck pain [Unknown]
  - Throat irritation [Unknown]
  - Oedema peripheral [Unknown]
  - Dyspnoea [Unknown]
  - Diarrhoea [Not Recovered/Not Resolved]
  - Night sweats [Unknown]
  - Vision blurred [Unknown]
  - Nasal congestion [Unknown]
  - Oropharyngeal pain [Unknown]
  - Arthralgia [Unknown]
  - Nausea [Unknown]
  - Asthenia [Unknown]
  - Eosinophil count increased [Unknown]
  - Granuloma [Unknown]
  - Lung infiltration [Unknown]

NARRATIVE: CASE EVENT DATE: 20120202
